FAERS Safety Report 10003566 (Version 1)
Quarter: 2014Q1

REPORT INFORMATION
  Report Type: Spontaneous
  Country: FR (occurrence: FR)
  Receive Date: 20140312
  Receipt Date: 20140312
  Transmission Date: 20141002
  Serious: Yes (Life-Threatening)
  Sender: FDA-Public Use
  Company Number: FR-BRISTOL-MYERS SQUIBB COMPANY-20400669

PATIENT
  Age: 84 Year
  Sex: Female

DRUGS (5)
  1. COUMADIN TABS 2 MG [Suspect]
     Dosage: SCORED TAB,11NOV13 TO 03DEC13
     Route: 048
     Dates: start: 20131111, end: 20131203
  2. CALCIPARINE [Suspect]
     Dosage: CALCIPARINE SOUS CUTANEE 7500IU/0.3ML,SOLN FOR INJ IN PRE-FILLED SYRINGE,28NOV13-03DEC13
     Route: 058
     Dates: start: 20131128
  3. AMLODIPINE BESYLATE [Concomitant]
  4. BISOPROLOL [Concomitant]
     Dosage: FILM-COATED SCORED TAB
  5. LASILIX [Concomitant]

REACTIONS (4)
  - Subcutaneous haematoma [Recovered/Resolved]
  - Hypotension [Recovered/Resolved]
  - Anaemia [Recovered/Resolved]
  - Renal failure chronic [Recovered/Resolved]
